FAERS Safety Report 6965673-8 (Version None)
Quarter: 2010Q3

REPORT INFORMATION
  Report Type: 
  Country: None (occurrence: None)
  Receive Date: 20100903
  Receipt Date: 20100827
  Transmission Date: 20110219
  Serious: Yes (Other)
  Sender: FDA-Public Use
  Company Number: US-ABBOTT-10P-163-0667273-00

PATIENT
  Age: 16 Year
  Sex: Male
  Weight: 81.266 kg

DRUGS (5)
  1. DEPAKOTE [Suspect]
     Indication: CONVULSION
     Dates: start: 20040101
  2. SERTRALINE HYDROCHLORIDE [Suspect]
     Indication: AGGRESSION
     Dosage: 100 MG IN THE MORNING, 200 MG AT NIGHT
     Dates: start: 20100701, end: 20100701
  3. SERTRALINE HYDROCHLORIDE [Suspect]
     Dates: start: 20100701, end: 20100701
  4. SERTRALINE HYDROCHLORIDE [Suspect]
     Dosage: 50 MG IN THE MORNING AND 100 MG AT NIGHT
     Dates: start: 20100701
  5. LAMICTAL [Suspect]
     Indication: CONVULSION
     Dates: start: 20100301

REACTIONS (4)
  - DIZZINESS [None]
  - FEELING ABNORMAL [None]
  - SOMNOLENCE [None]
  - TONGUE BLISTERING [None]
